FAERS Safety Report 4386845-5 (Version None)
Quarter: 2004Q2

REPORT INFORMATION
  Report Type: 
  Country: None (occurrence: None)
  Receive Date: 20040623
  Receipt Date: 20040603
  Transmission Date: 20050107
  Serious: Yes (Hospitalization)
  Sender: FDA-Public Use
  Company Number: USA040669119

PATIENT
  Age: 56 Year
  Sex: Male

DRUGS (1)
  1. GEMZAR [Suspect]

REACTIONS (3)
  - DYSPNOEA [None]
  - HYPOXIA [None]
  - LUNG INFILTRATION [None]
